FAERS Safety Report 5375112-9 (Version None)
Quarter: 2007Q2

REPORT INFORMATION
  Report Type: 
  Country: None (occurrence: None)
  Receive Date: 20070629
  Receipt Date: 20060518
  Transmission Date: 20071010
  Serious: No
  Sender: FDA-Public Use
  Company Number: US-ASTRAZENECA-2006UW09756

PATIENT
  Age: 56 Year
  Sex: Female
  Weight: 99.8 kg

DRUGS (2)
  1. NOLVADEX [Suspect]
     Indication: BREAST CANCER IN SITU
     Route: 048
     Dates: start: 20030601, end: 20050401
  2. DIOVAN [Concomitant]

REACTIONS (1)
  - WEIGHT INCREASED [None]
